FAERS Safety Report 4610186-1 (Version None)
Quarter: 2005Q1

REPORT INFORMATION
  Report Type: 
  Country: None (occurrence: None)
  Receive Date: 20050314
  Receipt Date: 20050307
  Transmission Date: 20050727
  Serious: Yes (Other)
  Sender: FDA-Public Use
  Company Number: GBWYE385031JAN05

PATIENT
  Sex: Female

DRUGS (8)
  1. EFFEXOR XR [Suspect]
     Indication: NEURALGIA
     Dosage: SEE IMAGE
     Route: 048
  2. DOSTINEX [Concomitant]
  3. PREDNISONE [Concomitant]
  4. MADOPAR (BENSERAZIDE HYDROCHLORIDE/LEVODOPA) [Concomitant]
  5. AMITRIPTYLINE HCL [Concomitant]
  6. ELLESE-DUET (ESTRADIOL/NORETHISTERONE ACETATE) [Concomitant]
  7. CALCICHEW (CALCIUM CARBONATE) [Concomitant]
  8. LEVOTHYROXINE SODIUM [Concomitant]

REACTIONS (1)
  - SUBCUTANEOUS ABSCESS [None]
